FAERS Safety Report 21041497 (Version 3)
Quarter: 2022Q3

REPORT INFORMATION
  Report Type: Spontaneous
  Country: AU (occurrence: AU)
  Receive Date: 20220705
  Receipt Date: 20220825
  Transmission Date: 20221026
  Serious: No
  Sender: FDA-Public Use
  Company Number: AU-LUPIN PHARMACEUTICALS INC.-2022-09161

PATIENT
  Sex: Female

DRUGS (1)
  1. LEFLUNOMIDE [Suspect]
     Active Substance: LEFLUNOMIDE
     Indication: Product used for unknown indication
     Dosage: UNK
     Route: 065

REACTIONS (3)
  - Wrong technique in product usage process [Unknown]
  - Product packaging difficult to open [Unknown]
  - No adverse event [Unknown]
